FAERS Safety Report 6533898-1 (Version None)
Quarter: 2010Q1

REPORT INFORMATION
  Report Type: 
  Country: None (occurrence: None)
  Receive Date: 20100111
  Receipt Date: 20090728
  Transmission Date: 20100710
  Serious: No
  Sender: FDA-Public Use
  Company Number: US-ABBOTT-09P-163-0588016-00

PATIENT
  Age: 47 Year
  Sex: Male

DRUGS (4)
  1. VICODIN [Suspect]
     Indication: DRUG USE FOR UNKNOWN INDICATION
  2. OXYCONTIN [Suspect]
     Indication: DRUG USE FOR UNKNOWN INDICATION
  3. PERCOCET [Suspect]
     Indication: DRUG USE FOR UNKNOWN INDICATION
  4. PERCODAN-DEMI [Suspect]
     Indication: DRUG USE FOR UNKNOWN INDICATION

REACTIONS (1)
  - DRUG DEPENDENCE [None]
